FAERS Safety Report 17592364 (Version 1)
Quarter: 2020Q1

REPORT INFORMATION
  Report Type: Spontaneous
  Country: US (occurrence: US)
  Receive Date: 20200327
  Receipt Date: 20200327
  Transmission Date: 20200409
  Serious: No
  Sender: FDA-Public Use
  Company Number: US-JNJFOC-20200338521

PATIENT
  Age: 55 Year
  Sex: Female
  Weight: 87.62 kg

DRUGS (1)
  1. STELARA [Suspect]
     Active Substance: USTEKINUMAB
     Indication: PSORIASIS
     Route: 058
     Dates: start: 20200228

REACTIONS (3)
  - Product storage error [Unknown]
  - Product dose omission [Unknown]
  - Product packaging issue [Unknown]

NARRATIVE: CASE EVENT DATE: 20200320
